FAERS Safety Report 21113582 (Version 1)
Quarter: 2022Q3

REPORT INFORMATION
  Report Type: Spontaneous
  Country: TR (occurrence: TR)
  Receive Date: 20220721
  Receipt Date: 20220721
  Transmission Date: 20221026
  Serious: Yes (Life-Threatening, Other)
  Sender: FDA-Public Use
  Company Number: TR-NOVARTISPH-NVSC2022TR163798

PATIENT
  Age: 68 Year
  Sex: Male

DRUGS (2)
  1. PANTOPRAZOLE SODIUM [Suspect]
     Active Substance: PANTOPRAZOLE SODIUM
     Indication: Product used for unknown indication
     Dosage: UNK
     Route: 048
  2. KEPPRA [Concomitant]
     Active Substance: LEVETIRACETAM
     Indication: Product used for unknown indication
     Dosage: UNK (NOT SPECIFIED COMPANY NAME)
     Route: 065

REACTIONS (7)
  - Embolic stroke [Unknown]
  - Monoplegia [Unknown]
  - Dysphagia [Unknown]
  - Aphasia [Unknown]
  - Cerebral haemorrhage [Unknown]
  - Drug ineffective [Unknown]
  - Wrong technique in product usage process [Unknown]
